FAERS Safety Report 8390204-8 (Version None)
Quarter: 2012Q2

REPORT INFORMATION
  Report Type: 
  Country: None (occurrence: None)
  Receive Date: 20120529
  Receipt Date: 20120518
  Transmission Date: 20120825
  Serious: Yes (Hospitalization, Other)
  Sender: FDA-Public Use
  Company Number: IE-MPIJNJ-2012-03609

PATIENT

DRUGS (5)
  1. INNOHEP [Concomitant]
  2. VALTREX [Concomitant]
  3. VELCADE [Suspect]
     Indication: MULTIPLE MYELOMA
     Dosage: 1.3 MG/M2, UNK
     Route: 065
  4. REVLIMID [Concomitant]
  5. DEXAMETHASONE [Concomitant]

REACTIONS (2)
  - NEUROPATHIC ULCER [None]
  - ARTHRALGIA [None]
